FAERS Safety Report 9826553 (Version 1)
Quarter: 2013Q4

REPORT INFORMATION
  Report Type: Spontaneous
  Country: US (occurrence: None)
  Receive Date: 20131223
  Receipt Date: 20131223
  Transmission Date: 20140711
  Serious: No
  Sender: FDA-Public Use
  Company Number: 218223LEO

PATIENT
  Age: 57 Year
  Sex: Male

DRUGS (7)
  1. PICATO [Suspect]
     Indication: ACTINIC KERATOSIS
     Dates: start: 20120623, end: 20120625
  2. ATACAND (CANDESARTAN CILEXETIL) [Concomitant]
  3. AMLODIPINE (AMLODIPINE) [Concomitant]
  4. HCTZ (HYDROCHLOROTHIAZIDE) [Concomitant]
  5. CRESTOR (ROSUVASTATIN) [Concomitant]
  6. ASA (ACETYLSALICYLIC ACID) [Concomitant]
  7. KCL (POTASSIUM CHLORIDE) [Concomitant]

REACTIONS (7)
  - Application site erythema [None]
  - Application site swelling [None]
  - Application site pain [None]
  - Application site vesicles [None]
  - Application site vesicles [None]
  - Application site exfoliation [None]
  - Drug administration error [None]
